FAERS Safety Report 22233985 (Version 2)
Quarter: 2024Q3

REPORT INFORMATION
  Report Type: Spontaneous
  Country: US (occurrence: US)
  Receive Date: 20230420
  Receipt Date: 20240715
  Transmission Date: 20241016
  Serious: No
  Sender: ROCHE
  Company Number: US-ROCHE-3133289

PATIENT
  Sex: Male

DRUGS (1)
  1. ESBRIET [Suspect]
     Active Substance: PIRFENIDONE
     Indication: Idiopathic pulmonary fibrosis
     Route: 048
     Dates: start: 20220128

REACTIONS (5)
  - Pruritus [Unknown]
  - Ageusia [Unknown]
  - Arthropathy [Unknown]
  - Muscle spasms [Unknown]
  - Arthralgia [Unknown]
